FAERS Safety Report 13737539 (Version 1)
Quarter: 2017Q3

REPORT INFORMATION
  Report Type: Spontaneous
  Country: PT (occurrence: PT)
  Receive Date: 20170710
  Receipt Date: 20170710
  Transmission Date: 20171127
  Serious: Yes (Hospitalization, Other)
  Sender: FDA-Public Use
  Company Number: PT-TEVA-771808ISR

PATIENT
  Age: 61 Year
  Sex: Male

DRUGS (4)
  1. IRINOTECANO HIKMA [Suspect]
     Active Substance: IRINOTECAN HYDROCHLORIDE
     Indication: ADENOCARCINOMA
     Dosage: FORM OF ADMIN.: CONCENTRATE FOR SOLUTION FOR INFUSION
     Route: 051
     Dates: start: 20170412, end: 20170412
  2. OXALIPLATINA KABI [Suspect]
     Active Substance: OXALIPLATIN
     Indication: ADENOCARCINOMA
     Dosage: FORM OF ADMIN.: CONCENTRATE FOR SOLUTION FOR INFUSION
     Route: 051
     Dates: start: 20170412, end: 20170412
  3. LEVOFOLIC [Concomitant]
     Active Substance: LEUCOVORIN
     Dates: start: 20170412, end: 20170412
  4. FLUOROURACILO TEVA 50 MG/ML [Suspect]
     Active Substance: FLUOROURACIL
     Indication: ADENOCARCINOMA
     Dates: start: 20170412, end: 20170412

REACTIONS (3)
  - Neutropenia [Recovering/Resolving]
  - Pancreatitis acute [Recovered/Resolved]
  - Febrile neutropenia [Recovered/Resolved]

NARRATIVE: CASE EVENT DATE: 20170419
